FAERS Safety Report 4602972-9 (Version None)
Quarter: 2005Q1

REPORT INFORMATION
  Report Type: 
  Country: None (occurrence: None)
  Receive Date: 20050307
  Receipt Date: 20050218
  Transmission Date: 20050727
  Serious: Yes (Congenital Anomaly)
  Sender: FDA-Public Use
  Company Number: 10341

PATIENT

DRUGS (4)
  1. METHOTREXATE [Suspect]
     Indication: NEOPLASM MALIGNANT
  2. CHLORAMBUCIL [Concomitant]
  3. FLUOROURACIL [Concomitant]
  4. PREDNISOLONE [Concomitant]

REACTIONS (8)
  - CARDIAC MURMUR [None]
  - CONGENITAL ANOMALY [None]
  - DRUG EXPOSURE DURING PREGNANCY [None]
  - FACIAL DYSMORPHISM [None]
  - LIMB MALFORMATION [None]
  - LOW SET EARS [None]
  - MICROGNATHIA [None]
  - PREMATURE BABY [None]
